FAERS Safety Report 15885722 (Version 2)
Quarter: 2022Q4

REPORT INFORMATION
  Report Type: Spontaneous
  Country: US (occurrence: US)
  Receive Date: 20190129
  Receipt Date: 20221103
  Transmission Date: 20230113
  Serious: Yes (Hospitalization)
  Sender: FDA-Public Use
  Company Number: US-MYLANLABS-2019M1008128

PATIENT
  Age: 43 Year
  Sex: Female

DRUGS (1)
  1. LEVOFLOXACIN [Suspect]
     Active Substance: LEVOFLOXACIN
     Indication: Ear infection
     Dosage: 500 MILLIGRAM, BID
     Route: 048

REACTIONS (4)
  - Complex regional pain syndrome [Recovering/Resolving]
  - Neurotoxicity [Recovering/Resolving]
  - Deep vein thrombosis [Recovering/Resolving]
  - Conversion disorder [Unknown]
